FAERS Safety Report 24903686 (Version 1)
Quarter: 2025Q1

REPORT INFORMATION
  Report Type: Spontaneous
  Country: US (occurrence: None)
  Receive Date: 20250129
  Receipt Date: 20250129
  Transmission Date: 20250409
  Serious: Yes (Life-Threatening, Hospitalization, Other)
  Sender: FDA-CTU
  Company Number: None

PATIENT
  Age: 48 Year
  Sex: Male
  Weight: 138.6 kg

DRUGS (1)
  1. VYVGART [Suspect]
     Active Substance: EFGARTIGIMOD ALFA-FCAB
     Indication: Myasthenia gravis
     Route: 041
     Dates: start: 20250129, end: 20250129

REACTIONS (7)
  - Dyspnoea [None]
  - Flushing [None]
  - Pulse abnormal [None]
  - Radial pulse abnormal [None]
  - Asthenia [None]
  - Muscle tightness [None]
  - Dizziness [None]

NARRATIVE: CASE EVENT DATE: 20250129
